FAERS Safety Report 5513916-X (Version None)
Quarter: 2007Q4

REPORT INFORMATION
  Report Type: 
  Country: None (occurrence: None)
  Receive Date: 20071109
  Receipt Date: 20071109
  Transmission Date: 20080405
  Serious: Yes (Life-Threatening, Hospitalization, Other)
  Sender: FDA-Public Use
  Company Number: None

PATIENT
  Age: 65 Year
  Sex: Male
  Weight: 106.1 kg

DRUGS (8)
  1. CETIXUMAB 100 MG VIAL BRISTOL-MEYERS [Suspect]
     Indication: COLON CANCER METASTATIC
     Dosage: 800 MG ONCE IV
     Route: 042
     Dates: start: 20070309, end: 20070309
  2. ESOMEPRAZOLE [Concomitant]
  3. SPIRIVA [Concomitant]
  4. POTASSIUM CHLORIDE [Concomitant]
  5. MAGNESIUM OXIDE [Concomitant]
  6. LEVOFLOXACIN [Concomitant]
  7. FLUOROURACIL [Concomitant]
  8. LEUCOVORIN CALCIUM [Concomitant]

REACTIONS (7)
  - CARDIO-RESPIRATORY ARREST [None]
  - FALL [None]
  - LOSS OF CONSCIOUSNESS [None]
  - RESPIRATORY DISTRESS [None]
  - SYNCOPE [None]
  - SYNCOPE VASOVAGAL [None]
  - URINARY INCONTINENCE [None]
